FAERS Safety Report 6971678-3 (Version None)
Quarter: 2010Q3

REPORT INFORMATION
  Report Type: 
  Country: None (occurrence: None)
  Receive Date: 20100908
  Receipt Date: 20100826
  Transmission Date: 20110219
  Serious: Yes (Death)
  Sender: FDA-Public Use
  Company Number: FR-GENENTECH-306009

PATIENT
  Sex: Male

DRUGS (2)
  1. MABTHERA [Suspect]
     Indication: HAIRY CELL LEUKAEMIA
     Dosage: 375 MG, UNK
     Route: 042
     Dates: start: 20100602, end: 20100602
  2. PREVISCAN [Suspect]
     Indication: ATRIAL FIBRILLATION
     Dosage: 25 MG, QAM
     Route: 048
     Dates: end: 20100603

REACTIONS (2)
  - CEREBRAL HAEMATOMA [None]
  - THROMBOCYTOPENIA [None]
